FAERS Safety Report 23461424 (Version 1)
Quarter: 2024Q1

REPORT INFORMATION
  Report Type: Spontaneous
  Country: US (occurrence: US)
  Receive Date: 20240131
  Receipt Date: 20240131
  Transmission Date: 20240410
  Serious: Yes (Hospitalization)
  Sender: FDA-Public Use
  Company Number: US-AMICUS THERAPEUTICS, INC.-AMI_2873

PATIENT
  Age: 76 Year
  Sex: Male

DRUGS (1)
  1. GALAFOLD [Suspect]
     Active Substance: MIGALASTAT HYDROCHLORIDE
     Indication: Fabry^s disease
     Dosage: 123 MILLIGRAM, QOD
     Route: 048
     Dates: start: 20200914

REACTIONS (5)
  - Hospitalisation [Recovering/Resolving]
  - Product availability issue [Unknown]
  - Product dose omission issue [Unknown]
  - Laryngitis [Unknown]
  - Sinusitis [Unknown]

NARRATIVE: CASE EVENT DATE: 20240117
